FAERS Safety Report 13601177 (Version 1)
Quarter: 2017Q2

REPORT INFORMATION
  Report Type: Spontaneous
  Country: US (occurrence: US)
  Receive Date: 20170601
  Receipt Date: 20170601
  Transmission Date: 20170830
  Serious: Yes (Death, Hospitalization)
  Sender: FDA-Public Use
  Company Number: None

PATIENT
  Age: 36 Year
  Sex: Female
  Weight: 50.3 kg

DRUGS (12)
  1. DEXAMETHASONE. [Concomitant]
     Active Substance: DEXAMETHASONE
  2. NEXIUM [Concomitant]
     Active Substance: ESOMEPRAZOLE MAGNESIUM
  3. TYLENOL [Concomitant]
     Active Substance: ACETAMINOPHEN
  4. MEMANTINE. [Concomitant]
     Active Substance: MEMANTINE
  5. OXYCODONE [Concomitant]
     Active Substance: OXYCODONE
  6. GLYCOLAX [Concomitant]
     Active Substance: POLYETHYLENE GLYCOL 3350
  7. PEMBROLIZUMAB 200MG [Suspect]
     Active Substance: PEMBROLIZUMAB
     Indication: METASTASES TO MENINGES
     Route: 042
     Dates: start: 20170328, end: 20170502
  8. AMBIEN [Concomitant]
     Active Substance: ZOLPIDEM TARTRATE
  9. ZOFRAN [Concomitant]
     Active Substance: ONDANSETRON HYDROCHLORIDE
  10. COLACE [Concomitant]
     Active Substance: DOCUSATE SODIUM
  11. BACTRIM [Concomitant]
     Active Substance: SULFAMETHOXAZOLE\TRIMETHOPRIM
  12. ATIVAN [Concomitant]
     Active Substance: LORAZEPAM

REACTIONS (4)
  - Nausea [None]
  - Dehydration [None]
  - Metastases to meninges [None]
  - Disease progression [None]

NARRATIVE: CASE EVENT DATE: 20170521
